FAERS Safety Report 8288936-5 (Version None)
Quarter: 2012Q2

REPORT INFORMATION
  Report Type: 
  Country: None (occurrence: None)
  Receive Date: 20120412
  Receipt Date: 20120329
  Transmission Date: 20120825
  Serious: Yes (Other)
  Sender: FDA-Public Use
  Company Number: DSJ-2012-06172

PATIENT
  Age: 9 Decade
  Sex: Female

DRUGS (6)
  1. CILOSTAZOL [Concomitant]
  2. CLOPIDOGREL (CLOPIDOGREL) (CLOPIDOGREL0 [Concomitant]
  3. BENICAR [Suspect]
     Indication: HYPERTENSION
     Dosage: 20 MG (20 MG, 1 IN 1 D), PER ORAL; 40 MG (20 MG, 2 IN 1 D), PER ORAL
     Route: 048
     Dates: start: 20080101, end: 20090101
  4. BENICAR [Suspect]
     Indication: HYPERTENSION
     Dosage: 20 MG (20 MG, 1 IN 1 D), PER ORAL; 40 MG (20 MG, 2 IN 1 D), PER ORAL
     Route: 048
     Dates: start: 20090101
  5. ATORVASTATIN (ATORVASTATIN) (ATORVASTATIN) [Concomitant]
  6. CLONIDINE [Concomitant]

REACTIONS (1)
  - CEREBROVASCULAR ACCIDENT [None]
